FAERS Safety Report 7730820-7 (Version None)
Quarter: 2011Q3

REPORT INFORMATION
  Report Type: 
  Country: None (occurrence: None)
  Receive Date: 20110906
  Receipt Date: 20110829
  Transmission Date: 20111222
  Serious: Yes (Death, Other)
  Sender: FDA-Public Use
  Company Number: PL-BAXTER-2011BH027932

PATIENT
  Age: 30 Year
  Sex: Male
  Weight: 82 kg

DRUGS (3)
  1. IFOSFAMIDE [Suspect]
     Indication: TESTIS CANCER
     Route: 042
  2. CISPLATIN [Suspect]
     Indication: TESTIS CANCER
     Route: 065
  3. ETOPOSIDE [Suspect]
     Indication: TESTIS CANCER
     Route: 065

REACTIONS (6)
  - ALTERED STATE OF CONSCIOUSNESS [None]
  - MEMORY IMPAIRMENT [None]
  - ECHOLALIA [None]
  - NYSTAGMUS [None]
  - DEATH [None]
  - MONOPARESIS [None]
